FAERS Safety Report 6961675-6 (Version None)
Quarter: 2010Q3

REPORT INFORMATION
  Report Type: 
  Country: None (occurrence: None)
  Receive Date: 20100901
  Receipt Date: 20100824
  Transmission Date: 20110219
  Serious: Yes (Hospitalization)
  Sender: FDA-Public Use
  Company Number: US-US-EMD SERONO, INC.-230232J10USA

PATIENT
  Sex: Female

DRUGS (10)
  1. REBIF [Suspect]
     Indication: MULTIPLE SCLEROSIS
     Route: 058
     Dates: start: 20030618
  2. REBIF [Suspect]
     Route: 058
     Dates: end: 20100702
  3. REBIF [Suspect]
     Route: 058
     Dates: start: 20100723
  4. ANTIBIOTICS [Concomitant]
     Indication: INJECTION SITE INFECTION
     Dates: start: 20080101
  5. ADDERALL 10 [Concomitant]
     Indication: FATIGUE
     Route: 048
  6. ADDERALL 10 [Concomitant]
     Indication: ATTENTION DEFICIT/HYPERACTIVITY DISORDER
  7. BACLOFEN [Concomitant]
     Indication: MUSCLE SPASTICITY
  8. IMITREX [Concomitant]
     Indication: MIGRAINE
     Route: 048
  9. IMITREX [Concomitant]
     Route: 048
  10. PREDNISONE [Concomitant]

REACTIONS (5)
  - ANAEMIA [None]
  - CHRONIC GASTROINTESTINAL BLEEDING [None]
  - FATIGUE [None]
  - GASTRIC ULCER HAEMORRHAGE [None]
  - INTESTINAL FUNCTIONAL DISORDER [None]
